FAERS Safety Report 18360746 (Version 3)
Quarter: 2021Q1

REPORT INFORMATION
  Report Type: Spontaneous
  Country: US (occurrence: US)
  Receive Date: 20201008
  Receipt Date: 20210119
  Transmission Date: 20210419
  Serious: No
  Sender: FDA-Public Use
  Company Number: US-PFIZER INC-2020375390

PATIENT
  Age: 1 Year
  Sex: Female
  Weight: 8.3 kg

DRUGS (1)
  1. GENOTROPIN [Suspect]
     Active Substance: SOMATROPIN
     Indication: HYPOPITUITARISM
     Dosage: 0.2 MG, DAILY
     Dates: start: 201910, end: 202009

REACTIONS (4)
  - Off label use [Unknown]
  - Drug dose omission by device [Unknown]
  - Product use in unapproved indication [Unknown]
  - Device issue [Unknown]

NARRATIVE: CASE EVENT DATE: 201910
